FAERS Safety Report 9605175 (Version 1)
Quarter: 2013Q4

REPORT INFORMATION
  Report Type: Spontaneous
  Country: US (occurrence: US)
  Receive Date: 20131008
  Receipt Date: 20131008
  Transmission Date: 20140711
  Serious: Yes (Death)
  Sender: FDA-Public Use
  Company Number: US-GLAXOSMITHKLINE-A1043706A

PATIENT
  Age: 59 Year
  Sex: Male

DRUGS (1)
  1. BEXXAR [Suspect]
     Indication: LYMPHOMA

REACTIONS (1)
  - Death [Fatal]
